APPROVED DRUG PRODUCT: FLUOROURACIL
Active Ingredient: FLUOROURACIL
Strength: 50MG/ML
Dosage Form/Route: INJECTABLE;INJECTION
Application: A087791 | Product #001
Applicant: MARCHAR LABORATORIES INC LTD
Approved: Jan 18, 1983 | RLD: No | RS: No | Type: DISCN